FAERS Safety Report 13482795 (Version 4)
Quarter: 2018Q1

REPORT INFORMATION
  Report Type: Report from Study
  Country: US (occurrence: US)
  Receive Date: 20170424
  Receipt Date: 20180117
  Transmission Date: 20180508
  Serious: No
  Sender: FDA-Public Use
  Company Number: US-AMGEN-USASL2017034643

PATIENT
  Age: 58 Year
  Sex: Male

DRUGS (11)
  1. ALPHA LIPOIC ACID [Concomitant]
     Active Substance: .ALPHA.-LIPOIC ACID
     Dosage: UNK, QD
  2. CACAO MINAR [Concomitant]
     Dosage: UNK, BID
  3. ASA [Concomitant]
     Active Substance: ASPIRIN
     Dosage: 81 MG, QD
  4. REPATHA [Suspect]
     Active Substance: EVOLOCUMAB
     Indication: HYPERCHOLESTEROLAEMIA
     Dosage: 140 MG, Q2WK
     Route: 065
     Dates: start: 20170220
  5. ATORVASTATIN [Concomitant]
     Active Substance: ATORVASTATIN
     Dosage: 40 MG, QD
  6. VITAMIN D [Concomitant]
     Active Substance: CHOLECALCIFEROL
     Dosage: 5000 UNIT, UNK
  7. VITAMIN C [Concomitant]
     Active Substance: ASCORBIC ACID
     Dosage: 1000 MG, QD
  8. RESVERATROL [Concomitant]
     Active Substance: DIETARY SUPPLEMENT\RESVERATROL
     Dosage: UNK, QD
  9. FISH OIL [Concomitant]
     Active Substance: FISH OIL
     Dosage: UNK, QD
     Route: 048
  10. FLAXSEED [Concomitant]
     Active Substance: FLAX SEED
     Dosage: UNK, BID
  11. CURCUMIN [Concomitant]
     Active Substance: CURCUMIN
     Dosage: UNK, BID

REACTIONS (8)
  - Injection site pain [Recovered/Resolved]
  - Anxiety [Unknown]
  - Nasal congestion [Recovered/Resolved]
  - Fear of injection [Unknown]
  - Sinus disorder [Recovered/Resolved]
  - Sinus congestion [Unknown]
  - Oropharyngeal pain [Recovered/Resolved]
  - Weight decreased [Recovered/Resolved]

NARRATIVE: CASE EVENT DATE: 2017
